FAERS Safety Report 7828772-4 (Version None)
Quarter: 2011Q4

REPORT INFORMATION
  Report Type: 
  Country: None (occurrence: None)
  Receive Date: 20111020
  Receipt Date: 20110509
  Transmission Date: 20120403
  Serious: No
  Sender: FDA-Public Use
  Company Number: US-MYLANLABS-2011S1007379

PATIENT
  Age: 72 Year
  Sex: Female
  Weight: 68.04 kg

DRUGS (9)
  1. CARVEDILOL [Suspect]
     Indication: HEART RATE IRREGULAR
     Route: 048
     Dates: start: 20101215
  2. ASPIRIN [Concomitant]
  3. CARVEDILOL [Suspect]
     Route: 048
     Dates: start: 20101118, end: 20101214
  4. ZOCOR [Concomitant]
  5. CALCIUM CARBONATE [Concomitant]
  6. LOSARTAN POTASSIUM [Concomitant]
     Dates: start: 20110125
  7. ASCORBIC ACID [Concomitant]
  8. MULTI-VITAMIN [Concomitant]
  9. FISH OIL [Concomitant]

REACTIONS (4)
  - FUNGAL INFECTION [None]
  - NAIL DISORDER [None]
  - PARAESTHESIA [None]
  - ERYTHEMA [None]
